FAERS Safety Report 26025795 (Version 2)
Quarter: 2025Q4

REPORT INFORMATION
  Report Type: Report from Study
  Country: EU (occurrence: EU)
  Receive Date: 20251111
  Receipt Date: 20251202
  Transmission Date: 20260118
  Serious: Yes (Hospitalization)
  Sender: NOVARTIS
  Company Number: EU-002147023-NVSC2025FR031821

PATIENT
  Sex: Male
  Weight: 72 kg

DRUGS (6)
  1. SCEMBLIX [Suspect]
     Active Substance: ASCIMINIB HYDROCHLORIDE
     Indication: Chronic myeloid leukaemia
     Dosage: 80 MG, BID (TOTAL DAILY DOSE)
     Route: 048
     Dates: start: 20241127
  2. SCEMBLIX [Suspect]
     Active Substance: ASCIMINIB HYDROCHLORIDE
     Indication: Philadelphia chromosome positive
  3. BISOPROLOL [Concomitant]
     Active Substance: BISOPROLOL
     Indication: Cardiac disorder
     Dosage: 10 MG
     Route: 048
     Dates: start: 20241122
  4. ELIQUIS [Concomitant]
     Active Substance: APIXABAN
     Indication: Cardiac disorder
     Dosage: 10 MG
     Route: 048
     Dates: start: 20241122
  5. DIGOXIN [Concomitant]
     Active Substance: DIGOXIN
     Indication: Cardiac disorder
     Dosage: 0.25 MG
     Route: 048
     Dates: start: 202412
  6. FUROSEMIDE [Concomitant]
     Active Substance: FUROSEMIDE
     Indication: Cardiac disorder
     Dosage: 40 MG
     Route: 048
     Dates: start: 202410, end: 20250603

REACTIONS (3)
  - Pleural effusion [Recovered/Resolved]
  - Pericardial effusion [Recovering/Resolving]
  - Pleural effusion [Recovered/Resolved]

NARRATIVE: CASE EVENT DATE: 20241230
